FAERS Safety Report 8685473 (Version 3)
Quarter: 2013Q1

REPORT INFORMATION
  Report Type: Report from Study
  Country: JP (occurrence: JP)
  Receive Date: 20120726
  Receipt Date: 20130205
  Transmission Date: 20140127
  Serious: Yes (Hospitalization, Other)
  Sender: FDA-Public Use
  Company Number: JP-009507513-1207JPN008132

PATIENT
  Age: 59 Year
  Sex: Male
  Weight: 70 kg

DRUGS (18)
  1. PEGINTRON [Suspect]
     Indication: CHRONIC HEPATITIS C
     Dosage: 1.5 MICROGRAM PER KILOGRAM, QW
     Route: 058
     Dates: start: 20120407, end: 20120622
  2. PEGINTRON [Suspect]
     Dosage: 1.2 MICROGRAM PER KILOGRAM, QW
     Route: 058
     Dates: start: 20120623, end: 20120707
  3. PEGINTRON [Suspect]
     Dosage: 1.5 MICROGRAM PER KILOGRAM, QW
     Route: 058
     Dates: start: 20120714, end: 20120728
  4. PEGINTRON [Suspect]
     Dosage: 1.5 MICROGRAM PER KILOGRAM, QW
     Route: 058
     Dates: start: 20120804, end: 20120924
  5. REBETOL [Suspect]
     Indication: CHRONIC HEPATITIS C
     Dosage: 800 MG, QD
     Route: 048
     Dates: start: 20120407, end: 20120629
  6. REBETOL [Suspect]
     Dosage: 600 MG, QD
     Route: 048
     Dates: start: 20120630, end: 20120704
  7. REBETOL [Suspect]
     Dosage: 400 MG, QD
     Route: 048
     Dates: start: 20120705, end: 20120728
  8. REBETOL [Suspect]
     Dosage: 400 MG, QD
     Route: 048
     Dates: start: 20120804, end: 20120831
  9. REBETOL [Suspect]
     Dosage: 600 MG, QD
     Route: 048
     Dates: start: 20120901, end: 20120928
  10. TELAVIC [Suspect]
     Indication: CHRONIC HEPATITIS C
     Dosage: 2250 MG, QD
     Route: 048
     Dates: start: 20120407, end: 20120427
  11. TELAVIC [Suspect]
     Dosage: 1500 MILLIGRAMS, QD
     Route: 048
     Dates: start: 20120428, end: 20120623
  12. ALDACTONE A [Suspect]
     Indication: ADVERSE EVENT
     Dosage: 25 MG, QD
     Route: 048
     Dates: start: 20120602, end: 20120623
  13. ALLORIN [Concomitant]
     Indication: HYPERURICAEMIA
     Dosage: 100 MG, QD
     Route: 048
     Dates: end: 20120511
  14. ALLORIN [Concomitant]
     Dosage: 200 MG, QD
     Route: 048
  15. MYSLEE [Concomitant]
     Indication: INSOMNIA
     Dosage: 10 MG, QD
     Route: 048
  16. MYSLEE [Concomitant]
     Dosage: 10 MG/DAY, AS NEEDED
     Dates: start: 20120627
  17. ADOAIR [Concomitant]
     Indication: EMPHYSEMA
     Dosage: 250 MICROGRAM, QD
     Route: 055
  18. PARIET [Concomitant]
     Dosage: 10 MG, QD

REACTIONS (7)
  - Anaemia [Not Recovered/Not Resolved]
  - Muscular weakness [Recovering/Resolving]
  - Renal disorder [Recovering/Resolving]
  - Urinary tract infection [Recovering/Resolving]
  - Syncope [Recovering/Resolving]
  - Decreased appetite [Recovering/Resolving]
  - Decreased appetite [Recovering/Resolving]
